FAERS Safety Report 24615838 (Version 2)
Quarter: 2024Q4

REPORT INFORMATION
  Report Type: Spontaneous
  Country: US (occurrence: US)
  Receive Date: 20241113
  Receipt Date: 20241219
  Transmission Date: 20250114
  Serious: No
  Sender: SHIONOGI
  Company Number: US-shionogi-202400002307

PATIENT
  Age: 42 Year
  Sex: Female

DRUGS (6)
  1. CEFIDEROCOL [Suspect]
     Active Substance: CEFIDEROCOL
     Indication: Acinetobacter infection
     Dosage: OVER 3 HOURS
     Route: 042
  2. CEFIDEROCOL [Suspect]
     Active Substance: CEFIDEROCOL
     Indication: Drug resistance
  3. CEFIDEROCOL [Suspect]
     Active Substance: CEFIDEROCOL
     Indication: Meningitis
  4. AMPICILLIN SODIUM\SULBACTAM SODIUM [Suspect]
     Active Substance: AMPICILLIN SODIUM\SULBACTAM SODIUM
     Indication: Acinetobacter infection
     Dosage: 6 GRAMS TOTAL DAILY DOSE OF SULBACTAM OVER 30 MINUTES
     Route: 042
  5. AMPICILLIN SODIUM\SULBACTAM SODIUM [Suspect]
     Active Substance: AMPICILLIN SODIUM\SULBACTAM SODIUM
     Indication: Drug resistance
  6. AMPICILLIN SODIUM\SULBACTAM SODIUM [Suspect]
     Active Substance: AMPICILLIN SODIUM\SULBACTAM SODIUM
     Indication: Meningitis

REACTIONS (2)
  - Treatment failure [Unknown]
  - Drug resistance [Unknown]
